FAERS Safety Report 12471588 (Version 2)
Quarter: 2016Q4

REPORT INFORMATION
  Report Type: Spontaneous
  Country: US (occurrence: US)
  Receive Date: 20160616
  Receipt Date: 20161019
  Transmission Date: 20170207
  Serious: No
  Sender: FDA-Public Use
  Company Number: US-GLAXOSMITHKLINE-US2016082519

PATIENT
  Age: 82 Year
  Sex: Male

DRUGS (7)
  1. DIGOXIN. [Concomitant]
     Active Substance: DIGOXIN
  2. AMLODIPINE [Concomitant]
     Active Substance: AMLODIPINE BESYLATE
  3. OXYGEN THERAPY [Concomitant]
     Active Substance: OXYGEN
  4. POTASSIUM [Concomitant]
     Active Substance: POTASSIUM
  5. TRAMADOL. [Concomitant]
     Active Substance: TRAMADOL
  6. FUROSEMIDE. [Concomitant]
     Active Substance: FUROSEMIDE
  7. ANORO ELLIPTA [Suspect]
     Active Substance: UMECLIDINIUM BROMIDE\VILANTEROL TRIFENATATE
     Indication: CHRONIC OBSTRUCTIVE PULMONARY DISEASE
     Dosage: 1 PUFF(S), QD
     Dates: start: 20160606

REACTIONS (3)
  - Haemoptysis [Unknown]
  - Dysphonia [Unknown]
  - Polyuria [Unknown]

NARRATIVE: CASE EVENT DATE: 20160607
